FAERS Safety Report 8822248 (Version 1)
Quarter: 2012Q4

REPORT INFORMATION
  Report Type: 
  Country: US (occurrence: US)
  Receive Date: 20121003
  Receipt Date: 20121003
  Transmission Date: 20130627
  Serious: No
  Sender: FDA-Public Use
  Company Number: US-PFIZER INC-2012241178

PATIENT
  Age: 62 Year
  Sex: Female
  Weight: 96.6 kg

DRUGS (7)
  1. LIPITOR [Suspect]
     Dosage: UNK
  2. ZOLOFT [Suspect]
     Dosage: UNK
  3. ACTOPLUS MET [Suspect]
     Dosage: UNK
  4. TRICOR [Suspect]
     Dosage: UNK
  5. JANUVIA [Suspect]
     Dosage: UNK
  6. ACIPHEX [Suspect]
     Dosage: UNK
  7. INSULIN [Concomitant]
     Indication: DIABETES MELLITUS
     Dosage: UNK

REACTIONS (1)
  - Hypersomnia [Unknown]
